FAERS Safety Report 5666642-0 (Version None)
Quarter: 2008Q1

REPORT INFORMATION
  Report Type: 
  Country: None (occurrence: None)
  Receive Date: 20080315
  Receipt Date: 20071221
  Transmission Date: 20080703
  Serious: No
  Sender: FDA-Public Use
  Company Number: US-ABBOTT-07P-163-0431656-00

PATIENT
  Sex: Female

DRUGS (2)
  1. HUMIRA [Suspect]
     Indication: CROHN'S DISEASE
     Route: 058
     Dates: start: 20070801
  2. HUMIRA [Suspect]
     Route: 058
     Dates: start: 20071224

REACTIONS (3)
  - DRUG INEFFECTIVE [None]
  - STREPTOCOCCAL INFECTION [None]
  - UPPER RESPIRATORY TRACT INFECTION [None]
